FAERS Safety Report 4526340-3 (Version None)
Quarter: 2004Q4

REPORT INFORMATION
  Report Type: 
  Country: None (occurrence: None)
  Receive Date: 20041210
  Receipt Date: 20041202
  Transmission Date: 20050328
  Serious: Yes (Death, Hospitalization)
  Sender: FDA-Public Use
  Company Number: STA-AE-04-MTX-603

PATIENT
  Age: 80 Year
  Sex: Male

DRUGS (6)
  1. METHOTREXATE [Suspect]
     Indication: RHEUMATOID ARTHRITIS
     Dosage: 12.5 TABLET 1X PER 1 DAY, ORAL
     Route: 048
     Dates: start: 20040611, end: 20040618
  2. ADANCOR (NICORANDIL) [Suspect]
     Dosage: ORAL
     Route: 048
     Dates: end: 20040624
  3. LASIX [Suspect]
     Dosage: 120 MG 1X PER 1 DAY, ORA
     Route: 048
     Dates: end: 20040624
  4. LASIX [Suspect]
     Dosage: 80 MG 1X PER 1 DAY, ORAL
     Route: 048
     Dates: start: 20040625, end: 20040101
  5. ENALAPRIL MALEATE [Suspect]
     Dosage: ORAL
     Route: 048
     Dates: end: 20040624
  6. MORPHINE SULFATE [Suspect]
     Dosage: 10 MG 2X PER 1 DAY, ORAL
     Route: 048
     Dates: start: 20040501, end: 20040101

REACTIONS (17)
  - ACCIDENTAL OVERDOSE [None]
  - ANOREXIA [None]
  - CARDIAC ARREST [None]
  - CONSTIPATION [None]
  - CYTOMEGALOVIRUS ANTIBODY POSITIVE [None]
  - DEHYDRATION [None]
  - DIARRHOEA [None]
  - DRUG INTERACTION [None]
  - FAECALOMA [None]
  - HYPOKALAEMIA [None]
  - LYMPHOPENIA [None]
  - MEDICATION ERROR [None]
  - NAUSEA [None]
  - OESOPHAGITIS ULCERATIVE [None]
  - ORTHOSTATIC HYPOTENSION [None]
  - VOMITING [None]
  - WEIGHT DECREASED [None]
